FAERS Safety Report 8174319-5 (Version None)
Quarter: 2012Q1

REPORT INFORMATION
  Report Type: 
  Country: None (occurrence: None)
  Receive Date: 20120229
  Receipt Date: 20120221
  Transmission Date: 20120608
  Serious: Yes (Death, Life-Threatening)
  Sender: FDA-Public Use
  Company Number: FR-MERCK-1202USA03639

PATIENT
  Age: 68 Year
  Sex: Female

DRUGS (15)
  1. CYTARABINE [Suspect]
     Indication: ACUTE LEUKAEMIA
     Route: 065
     Dates: start: 20111228
  2. EMEND [Suspect]
     Route: 048
     Dates: start: 20111229
  3. VALACYCLOVIR HYDROCHLORIDE [Suspect]
     Route: 065
     Dates: start: 20111228
  4. FASTURTEC [Suspect]
     Route: 065
     Dates: start: 20111228
  5. ZOFRAN [Concomitant]
     Route: 065
  6. PIPERACILLIN AND TAZOBACTAM [Suspect]
     Route: 065
     Dates: start: 20111228, end: 20120104
  7. AMIODARONE HCL [Suspect]
     Route: 042
     Dates: start: 20111230
  8. NOXAFIL [Concomitant]
     Route: 065
  9. IDARUBICIN HYDROCHLORIDE [Suspect]
     Indication: ACUTE LEUKAEMIA
     Route: 065
     Dates: start: 20111228
  10. HYDREA [Suspect]
     Route: 065
     Dates: start: 20111226, end: 20111228
  11. ZYVOX [Suspect]
     Route: 065
     Dates: start: 20111230
  12. VANCOMYCIN [Suspect]
     Route: 065
     Dates: start: 20120105
  13. LEVOFLOXACIN [Suspect]
     Route: 065
     Dates: start: 20111229
  14. METOCLOPRAMIDE [Concomitant]
     Route: 065
  15. XYZAL [Concomitant]
     Route: 065

REACTIONS (5)
  - RENAL FAILURE ACUTE [None]
  - HYPOTENSION [None]
  - TACHYCARDIA [None]
  - APLASIA [None]
  - DERMATITIS BULLOUS [None]
